FAERS Safety Report 5706820-5 (Version None)
Quarter: 2008Q2

REPORT INFORMATION
  Report Type: 
  Country: None (occurrence: None)
  Receive Date: 20080416
  Receipt Date: 20080410
  Transmission Date: 20081010
  Serious: Yes (Hospitalization)
  Sender: FDA-Public Use
  Company Number: FR-JNJFOC-20080403044

PATIENT
  Sex: Male

DRUGS (3)
  1. RISPERDAL CONSTA LP [Suspect]
     Indication: PSYCHOTIC DISORDER
     Route: 030
  2. LEPTICUR [Suspect]
     Indication: PARKINSONISM
     Route: 048
  3. IMOVANE [Suspect]
     Indication: INSOMNIA
     Route: 048

REACTIONS (1)
  - LEUKOPENIA [None]
